FAERS Safety Report 9668636 (Version 1)
Quarter: 2013Q4

REPORT INFORMATION
  Report Type: Spontaneous
  Country: GB (occurrence: GB)
  Receive Date: 20131105
  Receipt Date: 20131105
  Transmission Date: 20140711
  Serious: Yes (Other)
  Sender: FDA-Public Use
  Company Number: GB-DRREDDYS-GER/UKI/13/0035234

PATIENT
  Age: 31 Year
  Sex: Male

DRUGS (3)
  1. FEXOFENADINE [Suspect]
     Indication: RHINITIS ALLERGIC
     Route: 048
     Dates: start: 20130929, end: 20130929
  2. QVAR [Concomitant]
     Indication: ASTHMA
     Dates: start: 20120331
  3. SALBUTAMOL [Concomitant]
     Indication: ASTHMA
     Dates: start: 20120331

REACTIONS (3)
  - Rash generalised [Recovered/Resolved]
  - Swelling face [Recovered/Resolved]
  - Lip swelling [Recovered/Resolved]
